FAERS Safety Report 20999497 (Version 1)
Quarter: 2022Q2

REPORT INFORMATION
  Report Type: Spontaneous
  Country: US (occurrence: US)
  Receive Date: 20220623
  Receipt Date: 20220623
  Transmission Date: 20220721
  Serious: Yes (Disabling, Other)
  Sender: FDA-Public Use
  Company Number: US-ALLERGAN-2220128US

PATIENT
  Sex: Female

DRUGS (1)
  1. RESTASIS [Suspect]
     Active Substance: CYCLOSPORINE
     Indication: Dry eye
     Dosage: UNK

REACTIONS (9)
  - Cataract [Unknown]
  - Wheelchair user [Not Recovered/Not Resolved]
  - Fall [Recovered/Resolved]
  - Femur fracture [Not Recovered/Not Resolved]
  - Pelvic fracture [Unknown]
  - Intraocular lens implant [Unknown]
  - Dysphonia [Not Recovered/Not Resolved]
  - Oropharyngeal pain [Not Recovered/Not Resolved]
  - Product storage error [Unknown]

NARRATIVE: CASE EVENT DATE: 20211226
